FAERS Safety Report 13585540 (Version 1)
Quarter: 2017Q2

REPORT INFORMATION
  Report Type: Spontaneous
  Country: US (occurrence: US)
  Receive Date: 20170526
  Receipt Date: 20170526
  Transmission Date: 20170830
  Serious: Yes (Disabling, Other)
  Sender: FDA-Public Use
  Company Number: None

PATIENT
  Age: 63 Year
  Sex: Female
  Weight: 56.25 kg

DRUGS (9)
  1. MULTI VITAMIN [Concomitant]
     Active Substance: VITAMINS
  2. VITAMIN C [Concomitant]
     Active Substance: ASCORBIC ACID
  3. MAGNESIUM [Concomitant]
     Active Substance: MAGNESIUM
  4. OVER THE COUNTER SLEEP AIDS [Concomitant]
  5. CALCIUM [Concomitant]
     Active Substance: CALCIUM
  6. MOTRIN [Concomitant]
     Active Substance: IBUPROFEN
  7. LEVAQUIN [Suspect]
     Active Substance: LEVOFLOXACIN
     Indication: PNEUMONIA
     Route: 048
     Dates: start: 20170404, end: 20170409
  8. VITAMIN K [Concomitant]
     Active Substance: PHYTONADIONE
  9. ATIVAN [Concomitant]
     Active Substance: LORAZEPAM

REACTIONS (8)
  - Pain in extremity [None]
  - Muscle spasms [None]
  - Diarrhoea [None]
  - Tenderness [None]
  - Mood swings [None]
  - Contusion [None]
  - Weight bearing difficulty [None]
  - Insomnia [None]

NARRATIVE: CASE EVENT DATE: 20170306
